FAERS Safety Report 6157888-6 (Version None)
Quarter: 2009Q2

REPORT INFORMATION
  Report Type: 
  Country: None (occurrence: None)
  Receive Date: 20090417
  Receipt Date: 20080401
  Transmission Date: 20091009
  Serious: Yes (Other)
  Sender: FDA-Public Use
  Company Number: US-ASTRAZENECA-2008UW01149

PATIENT
  Age: 17393 Day
  Sex: Male

DRUGS (15)
  1. SEROQUEL [Suspect]
     Indication: ANXIETY
     Route: 048
     Dates: start: 20050505
  2. SEROQUEL [Suspect]
     Indication: DEPRESSION
     Route: 048
     Dates: start: 20050505
  3. SEROQUEL [Suspect]
     Indication: SLEEP DISORDER
     Route: 048
     Dates: start: 20050505
  4. SEROQUEL [Suspect]
     Indication: PSYCHOTIC DISORDER
     Route: 048
     Dates: start: 20050505
  5. SEROQUEL [Suspect]
     Dosage: 25 - 900 MG
     Route: 048
     Dates: start: 20040209, end: 20080310
  6. SEROQUEL [Suspect]
     Dosage: 25 - 900 MG
     Route: 048
     Dates: start: 20040209, end: 20080310
  7. SEROQUEL [Suspect]
     Dosage: 25 - 900 MG
     Route: 048
     Dates: start: 20040209, end: 20080310
  8. SEROQUEL [Suspect]
     Dosage: 25 - 900 MG
     Route: 048
     Dates: start: 20040209, end: 20080310
  9. EFFEXOR [Concomitant]
  10. WELLBUTRIN [Concomitant]
  11. KLONOPIN [Concomitant]
  12. ZOLOFT [Concomitant]
  13. ABILIFY [Concomitant]
  14. XANAX [Concomitant]
  15. AMBIEN [Concomitant]

REACTIONS (18)
  - ANXIETY [None]
  - CHRONIC OBSTRUCTIVE PULMONARY DISEASE [None]
  - CONFUSIONAL STATE [None]
  - DELUSIONAL DISORDER, UNSPECIFIED TYPE [None]
  - DIABETES MELLITUS [None]
  - FEELING ABNORMAL [None]
  - HALLUCINATION [None]
  - HOMICIDAL IDEATION [None]
  - HYPERTENSION [None]
  - MANIA [None]
  - MYOCARDIAL INFARCTION [None]
  - NIGHTMARE [None]
  - PAIN [None]
  - PSYCHOTIC DISORDER [None]
  - ROAD TRAFFIC ACCIDENT [None]
  - SLEEP DISORDER [None]
  - SUICIDAL IDEATION [None]
  - WEIGHT INCREASED [None]
